FAERS Safety Report 7504413-0 (Version None)
Quarter: 2011Q2

REPORT INFORMATION
  Report Type: 
  Country: None (occurrence: None)
  Receive Date: 20110525
  Receipt Date: 20110516
  Transmission Date: 20111010
  Serious: Yes (Hospitalization)
  Sender: FDA-Public Use
  Company Number: US-ELI_LILLY_AND_COMPANY-US201104003890

PATIENT
  Sex: Female

DRUGS (29)
  1. NORVASC [Concomitant]
     Dosage: 10 MG, QD
  2. ZESTRIL [Concomitant]
     Dosage: 10 MG, QD
  3. SINGULAIR [Concomitant]
     Dosage: 10 MG, QD
  4. OXYGEN [Concomitant]
     Dosage: 15 L, PRN
  5. ALBUTEROL SULFATE AUTOHALER [Concomitant]
     Dosage: UNK, PRN
  6. CARDIZEM CD [Concomitant]
     Dosage: 240 MG, QD
  7. SPIRIVA [Concomitant]
     Dosage: 18 UG, QD
  8. EFFEXOR [Concomitant]
     Dosage: 300 MG, QD
  9. OXYGEN [Concomitant]
     Dosage: 8 L, PRN
  10. HUMALOG [Suspect]
     Indication: TYPE 2 DIABETES MELLITUS
     Dosage: UNK UNK, PRN
  11. LASIX [Concomitant]
     Dosage: 80 MG, QD
  12. MAXITROL [Concomitant]
     Dosage: UNK, EACH EVENING
  13. LANTUS [Concomitant]
     Dosage: 15 U, QD
  14. PREDNISONE [Concomitant]
     Dosage: UNK
  15. OXYCODONE HCL [Concomitant]
     Indication: NEUROPATHY PERIPHERAL
     Dosage: 40 MG, BID
  16. PROTONIX [Concomitant]
     Dosage: 40 MG, BID
  17. TRAZODONE HCL [Concomitant]
     Dosage: 100 MG, QD
  18. NASACORT [Concomitant]
     Dosage: UNK, QD
  19. GABAPENTIN [Concomitant]
     Dosage: 800 MG, QID
  20. OPTIVAR [Concomitant]
     Dosage: UNK, EACH EVENING
  21. POTASSIUM CHLORIDE [Concomitant]
     Dosage: 40 MEQ, QD
  22. ADVAIR DISKUS 100/50 [Concomitant]
     Dosage: 1 DF, BID
  23. SPIRONOLACTONE [Concomitant]
     Dosage: 25 MG, QD
  24. COUMADIN [Concomitant]
     Dosage: 7.5 MG, QD
  25. RESTASIS [Concomitant]
     Dosage: 1 GTT, BID
  26. MUCINEX [Concomitant]
     Dosage: 1 DF, BID
  27. VALIUM [Concomitant]
     Dosage: 2 MG, EVERY 6 HRS
  28. CRESTOR [Concomitant]
     Dosage: 10 MG, QD
  29. TRANSDERM [Concomitant]
     Dosage: UNK, OTHER

REACTIONS (4)
  - MALAISE [None]
  - BLOOD GLUCOSE INCREASED [None]
  - CHRONIC OBSTRUCTIVE PULMONARY DISEASE [None]
  - NAUSEA [None]
